FAERS Safety Report 20131576 (Version 1)
Quarter: 2021Q4

REPORT INFORMATION
  Report Type: Spontaneous
  Country: NL (occurrence: NL)
  Receive Date: 20211130
  Receipt Date: 20211130
  Transmission Date: 20220303
  Serious: Yes (Death, Hospitalization)
  Sender: FDA-Public Use
  Company Number: NL-DSJP-DSE-2021-138744

PATIENT
  Age: 40 Year
  Sex: Female

DRUGS (4)
  1. PRASUGREL HYDROCHLORIDE [Suspect]
     Active Substance: PRASUGREL HYDROCHLORIDE
     Indication: Thrombosis prophylaxis
     Dosage: UNK
  2. ASPIRIN [Suspect]
     Active Substance: ASPIRIN
     Indication: Thrombosis prophylaxis
     Dosage: 250 MG
  3. REOPRO [Suspect]
     Active Substance: ABCIXIMAB
     Indication: Product used for unknown indication
     Dosage: 10 MG
     Route: 042
  4. INNOHEP [Suspect]
     Active Substance: TINZAPARIN SODIUM
     Indication: Prophylaxis
     Dosage: 2500 IU, BID

REACTIONS (2)
  - Cerebral ischaemia [Fatal]
  - Brain herniation [Fatal]
